FAERS Safety Report 20296903 (Version 1)
Quarter: 2022Q1

REPORT INFORMATION
  Report Type: Report from Study
  Country: US (occurrence: US)
  Receive Date: 20220105
  Receipt Date: 20220105
  Transmission Date: 20220423
  Serious: Yes (Hospitalization, Other)
  Sender: FDA-Public Use
  Company Number: US-SA-2019SA224564

PATIENT
  Age: 75 Year
  Sex: Female

DRUGS (3)
  1. DUPILUMAB [Suspect]
     Active Substance: DUPILUMAB
     Indication: Dermatitis atopic
     Dosage: 600 MG, 1X
     Route: 058
     Dates: start: 20190426, end: 20190426
  2. DUPILUMAB [Suspect]
     Active Substance: DUPILUMAB
     Dosage: 300 MG, QOW
     Route: 058
     Dates: start: 2019
  3. CORTISONE [Concomitant]
     Active Substance: CORTISONE

REACTIONS (13)
  - Anxiety [Not Recovered/Not Resolved]
  - Dyspnoea [Not Recovered/Not Resolved]
  - Hip fracture [Recovering/Resolving]
  - Injection site pruritus [Unknown]
  - Cerebrovascular accident [Unknown]
  - Visual impairment [Not Recovered/Not Resolved]
  - Hypoxia [Recovered/Resolved]
  - Hemiparesis [Unknown]
  - Fall [Recovering/Resolving]
  - Wound [Recovering/Resolving]
  - Metamorphopsia [Not Recovered/Not Resolved]
  - Expired product administered [Unknown]
  - Therapeutic response decreased [Unknown]

NARRATIVE: CASE EVENT DATE: 20190801
